FAERS Safety Report 6927974-9 (Version None)
Quarter: 2010Q3

REPORT INFORMATION
  Report Type: 
  Country: None (occurrence: None)
  Receive Date: 20100816
  Receipt Date: 20100816
  Transmission Date: 20110219
  Serious: Yes (Other)
  Sender: FDA-Public Use
  Company Number: None

PATIENT
  Age: 52 Year
  Sex: Female
  Weight: 108.8633 kg

DRUGS (1)
  1. CORTISONE ACETATE INJ [Suspect]
     Indication: INTERVERTEBRAL DISC PROTRUSION
     Dosage: CORTISONE INJECTION ID
     Dates: start: 20100804, end: 20100804

REACTIONS (3)
  - BLOOD PRESSURE INCREASED [None]
  - HEART RATE INCREASED [None]
  - INFECTION [None]
